FAERS Safety Report 7030184-0 (Version None)
Quarter: 2010Q4

REPORT INFORMATION
  Report Type: 
  Country: None (occurrence: None)
  Receive Date: 20101006
  Receipt Date: 20101005
  Transmission Date: 20110411
  Serious: Yes (Other)
  Sender: FDA-Public Use
  Company Number: US-BRISTOL-MYERS SQUIBB COMPANY-15319015

PATIENT
  Sex: Female

DRUGS (4)
  1. SUSTIVA [Suspect]
     Dosage: 2 DF = 2 PILLS
     Dates: start: 20100903
  2. COMBIVIR [Concomitant]
  3. CLONAZEPAM [Concomitant]
  4. INSULIN [Concomitant]
     Dosage: 1 DF = 70/30 UNIT NOS

REACTIONS (4)
  - DIARRHOEA [None]
  - HALLUCINATION [None]
  - HEART RATE INCREASED [None]
  - VOMITING [None]
